FAERS Safety Report 25468009 (Version 1)
Quarter: 2025Q2

REPORT INFORMATION
  Report Type: Spontaneous
  Country: CN (occurrence: CN)
  Receive Date: 20250623
  Receipt Date: 20250623
  Transmission Date: 20250717
  Serious: Yes (Hospitalization)
  Sender: COHERUS
  Company Number: CN-SHANGHAI JUNSHI BIOSCIENCES CO., LTD.-CN2025014499

PATIENT

DRUGS (3)
  1. TORIPALIMAB [Suspect]
     Active Substance: TORIPALIMAB
     Indication: Hepatobiliary cancer
     Route: 041
     Dates: start: 20250326, end: 20250326
  2. SURUFATINIB [Suspect]
     Active Substance: SURUFATINIB
     Indication: Hepatobiliary cancer
     Dosage: 250 MG, QD
     Route: 048
     Dates: start: 20250326, end: 20250407
  3. SACITUZUMAB TIRUMOTECAN [Suspect]
     Active Substance: SACITUZUMAB TIRUMOTECAN
     Indication: Hepatobiliary cancer
     Route: 041
     Dates: start: 20250326, end: 20250326

REACTIONS (1)
  - Myelosuppression [Recovering/Resolving]

NARRATIVE: CASE EVENT DATE: 20250407
